FAERS Safety Report 9848091 (Version 1)
Quarter: 2013Q4

REPORT INFORMATION
  Report Type: Spontaneous
  Country: US (occurrence: None)
  Receive Date: 20131226
  Receipt Date: 20131226
  Transmission Date: 20140711
  Serious: Yes (Other)
  Sender: FDA-Public Use
  Company Number: PHHY2013US029796

PATIENT
  Age: 76 Year
  Sex: Female

DRUGS (1)
  1. VOLTAREN (DICLOFENAC SODIUM) UNKNOWN [Suspect]

REACTIONS (3)
  - Drug hypersensitivity [None]
  - Swelling face [None]
  - Flushing [None]
